FAERS Safety Report 15112974 (Version 1)
Quarter: 2018Q3

REPORT INFORMATION
  Report Type: Spontaneous
  Country: US (occurrence: US)
  Receive Date: 20180705
  Receipt Date: 20180705
  Transmission Date: 20181010
  Serious: Yes (Other)
  Sender: FDA-Public Use
  Company Number: US-SENTYNL THERAPEUTICS, INC.  -2051496

PATIENT
  Age: 37 Year
  Sex: Female

DRUGS (1)
  1. LEVORPHANOL TARTRATE. [Suspect]
     Active Substance: LEVORPHANOL TARTRATE
     Indication: PAIN
     Route: 048
     Dates: start: 20180518

REACTIONS (3)
  - Constipation [Unknown]
  - Gastric haemorrhage [Unknown]
  - Flatulence [Unknown]
